FAERS Safety Report 11023749 (Version 2)
Quarter: 2015Q2

REPORT INFORMATION
  Report Type: Spontaneous
  Country: US (occurrence: US)
  Receive Date: 20150413
  Receipt Date: 20150525
  Transmission Date: 20150821
  Serious: No
  Sender: FDA-Public Use
  Company Number: US-JNJFOC-20130200694

PATIENT
  Sex: Female
  Weight: 58.06 kg

DRUGS (1)
  1. LEVAQUIN [Suspect]
     Active Substance: LEVOFLOXACIN
     Indication: NAIL INFECTION
     Dosage: FOR 10 DAYS
     Route: 048
     Dates: start: 201301, end: 201301

REACTIONS (2)
  - Pain in extremity [Unknown]
  - Back pain [Unknown]
